FAERS Safety Report 25254850 (Version 1)
Quarter: 2025Q2

REPORT INFORMATION
  Report Type: Spontaneous
  Country: HR (occurrence: HR)
  Receive Date: 20250430
  Receipt Date: 20250430
  Transmission Date: 20250716
  Serious: Yes (Other)
  Sender: CHEPLAPHARM
  Company Number: None

PATIENT
  Age: 64 Year
  Sex: Male

DRUGS (5)
  1. OLANZAPINE [Suspect]
     Active Substance: OLANZAPINE
     Indication: Suicide attempt
     Dosage: 1 {DF} = 1 BLISTER?DAILY DOSE: 1 DOSAGE FORM
     Route: 048
     Dates: start: 20250307, end: 20250307
  2. OLANZAPINE [Suspect]
     Active Substance: OLANZAPINE
     Indication: Suicide attempt
     Dosage: 1 {DF} = 1 BLISTER?DAILY DOSE: 1 DOSAGE FORM
     Route: 048
     Dates: start: 20250307, end: 20250307
  3. AKINETON [Suspect]
     Active Substance: BIPERIDEN HYDROCHLORIDE
     Indication: Suicide attempt
     Dosage: 1 {DF} = 1 BLISTER?DAILY DOSE: 1 DOSAGE FORM
     Route: 048
     Dates: start: 20250307, end: 20250307
  4. NORMABEL [Suspect]
     Active Substance: DIAZEPAM
     Indication: Suicide attempt
     Dosage: 1 {DF} = 1 BLISTER?DAILY DOSE: 1 DOSAGE FORM
     Route: 048
     Dates: start: 20250307, end: 20250307
  5. BISOPROLOL FUMARATE [Suspect]
     Active Substance: BISOPROLOL FUMARATE
     Indication: Suicide attempt
     Dosage: 1 {DF} = 1 BLISTER?DAILY DOSE: 1 DOSAGE FORM
     Route: 048
     Dates: start: 20250307, end: 20250307

REACTIONS (4)
  - Suicide attempt [Unknown]
  - Hypotension [Unknown]
  - Oxygen saturation decreased [Unknown]
  - Intentional overdose [Unknown]

NARRATIVE: CASE EVENT DATE: 20250307
